FAERS Safety Report 14202721 (Version 2)
Quarter: 2017Q4

REPORT INFORMATION
  Report Type: Spontaneous
  Country: AT (occurrence: AT)
  Receive Date: 20171118
  Receipt Date: 20171213
  Transmission Date: 20180321
  Serious: Yes (Hospitalization)
  Sender: FDA-Public Use
  Company Number: AT-BRISTOL-MYERS SQUIBB COMPANY-BMS-2017-090996

PATIENT
  Age: 73 Year
  Sex: Male

DRUGS (1)
  1. NIVOLUMAB [Suspect]
     Active Substance: NIVOLUMAB
     Indication: SQUAMOUS CELL CARCINOMA OF LUNG
     Dosage: UNAVAILABLE
     Route: 065
     Dates: start: 201701, end: 201706

REACTIONS (4)
  - Peripheral sensory neuropathy [Unknown]
  - Adverse event [Unknown]
  - Diarrhoea [Unknown]
  - Folate deficiency [Unknown]

NARRATIVE: CASE EVENT DATE: 201706
